FAERS Safety Report 13502193 (Version 1)
Quarter: 2017Q2

REPORT INFORMATION
  Report Type: Spontaneous
  Country: US (occurrence: US)
  Receive Date: 20170502
  Receipt Date: 20170502
  Transmission Date: 20170830
  Serious: Yes (Other)
  Sender: FDA-Public Use
  Company Number: US-CHARTWELL PHARMA-2020088

PATIENT
  Age: 52 Year
  Sex: Male

DRUGS (1)
  1. DOXYCYCLINE HYCLATE. [Suspect]
     Active Substance: DOXYCYCLINE HYCLATE
     Indication: ENTEROCOCCAL INFECTION
     Route: 048

REACTIONS (2)
  - Gastrointestinal mucosal necrosis [Recovered/Resolved]
  - Reactive gastropathy [Recovered/Resolved]
